FAERS Safety Report 4525207-4 (Version None)
Quarter: 2004Q4

REPORT INFORMATION
  Report Type: 
  Country: None (occurrence: None)
  Receive Date: 20041117
  Receipt Date: 20040212
  Transmission Date: 20050328
  Serious: Yes (Other)
  Sender: FDA-Public Use
  Company Number: 2004S1000496

PATIENT
  Sex: Female

DRUGS (6)
  1. CLOZAPINE [Suspect]
     Dosage: 400MG Q HS, ORAL
     Route: 048
     Dates: start: 20020926
  2. CARBAMAZEPINE [Concomitant]
  3. ARIPIRAZOLE [Concomitant]
  4. ETHINYL ESTRADIOL AND NORETHINDRONE [Concomitant]
  5. TOPIRMATE [Concomitant]
  6. FLUCONAZOLE [Concomitant]

REACTIONS (1)
  - NEUTROPENIA [None]
